FAERS Safety Report 8908761 (Version 1)
Quarter: 2012Q4

REPORT INFORMATION
  Report Type: 
  Country: US (occurrence: US)
  Receive Date: 20121114
  Receipt Date: 20121114
  Transmission Date: 20130627
  Serious: Yes (Other)
  Sender: FDA-Public Use
  Company Number: PHHY2012US104644

PATIENT
  Age: 70 Year
  Sex: Male

DRUGS (5)
  1. ASCRIPTIN - UNKNOWN FORMULA [Suspect]
     Dosage: 1 DF, QD
     Route: 048
  2. LIPITOR [Concomitant]
     Indication: BLOOD CHOLESTEROL
     Route: 048
  3. LISINOPRIL [Concomitant]
     Indication: BLOOD PRESSURE
     Dosage: 1 DF, UNK
     Route: 048
  4. NATTOKINASE [Concomitant]
     Indication: HYPOAESTHESIA
     Dosage: 1 DF, UNK
     Route: 048
  5. FLOUROURACIL [Concomitant]

REACTIONS (7)
  - Colon cancer stage III [Unknown]
  - Intestinal obstruction [Recovered/Resolved]
  - Hypoaesthesia [Not Recovered/Not Resolved]
  - Nervousness [Unknown]
  - Headache [Not Recovered/Not Resolved]
  - Feeling abnormal [Not Recovered/Not Resolved]
  - Incorrect drug administration duration [Unknown]
